FAERS Safety Report 26176562 (Version 1)
Quarter: 2025Q4

REPORT INFORMATION
  Report Type: Spontaneous
  Country: EU (occurrence: EU)
  Receive Date: 20251218
  Receipt Date: 20251218
  Transmission Date: 20260118
  Serious: Yes (Hospitalization)
  Sender: MERCK SHARP & DOHME LLC
  Company Number: None

PATIENT
  Age: 86 Year
  Sex: Male

DRUGS (7)
  1. KEYTRUDA [Suspect]
     Active Substance: PEMBROLIZUMAB
     Indication: Angiosarcoma
     Dosage: KEYTRUDA CONCENTRATE FOR INFUSION (PEMBROLIZUMAB) 200MG Q21 (EVERY 21 DAYS)
     Dates: end: 20251029
  2. Cerebokan 80 mg - Film-coated tablets [Concomitant]
     Dosage: 1 - 0 - 1
  3. NOVALGIN (METAMIZOLE SODIUM) [Concomitant]
     Active Substance: METAMIZOLE SODIUM
     Dosage: 500 MG
  4. PACLITAXEL [Concomitant]
     Active Substance: PACLITAXEL
     Indication: Angiosarcoma recurrent
     Dosage: TIME INTERVAL: CYCLICAL: CURRENTLY 5TH CYCLE
     Dates: start: 202505
  5. Thrombo ASS 100 mg-film-coated tablets [Concomitant]
     Dosage: 1 - 0 - 0
  6. Parkemed 500 mg [Concomitant]
     Dosage: TIME INTERVAL: AS NECESSARY: E.G. AS NEEDED
  7. Oleovit D3 Drops [Concomitant]
     Dosage: 40 DROPS MORNING SO

REACTIONS (1)
  - Right ventricular dysfunction [Recovering/Resolving]

NARRATIVE: CASE EVENT DATE: 20251101
